FAERS Safety Report 25079849 (Version 1)
Quarter: 2025Q1

REPORT INFORMATION
  Report Type: Spontaneous
  Country: US (occurrence: US)
  Receive Date: 20250314
  Receipt Date: 20250314
  Transmission Date: 20250408
  Serious: Yes (Hospitalization, Other)
  Sender: AMARIN
  Company Number: US-Amarin Pharma  Inc-2025AMR000159

PATIENT
  Age: 64 Year
  Sex: Male

DRUGS (4)
  1. VASCEPA [Suspect]
     Active Substance: ICOSAPENT ETHYL
     Indication: Coronary artery disease
     Dates: end: 20250128
  2. VASCEPA [Suspect]
     Active Substance: ICOSAPENT ETHYL
     Dates: start: 20250212, end: 20250212
  3. ASPIRIN [Concomitant]
     Active Substance: ASPIRIN
     Indication: Product used for unknown indication
     Route: 065
     Dates: end: 20250128
  4. ASPIRIN [Concomitant]
     Active Substance: ASPIRIN
     Route: 065
     Dates: start: 20250212, end: 20250212

REACTIONS (6)
  - Benign prostatic hyperplasia [Recovered/Resolved]
  - Catheter site thrombosis [Recovered/Resolved]
  - Catheter site injury [Unknown]
  - Syncope [Unknown]
  - Anaemia [Recovering/Resolving]
  - Intentional dose omission [Unknown]

NARRATIVE: CASE EVENT DATE: 20240201
